FAERS Safety Report 13329192 (Version 1)
Quarter: 2017Q1

REPORT INFORMATION
  Report Type: Spontaneous
  Country: US (occurrence: US)
  Receive Date: 20170313
  Receipt Date: 20170313
  Transmission Date: 20170428
  Serious: Yes (Disabling)
  Sender: FDA-Public Use
  Company Number: None

PATIENT
  Age: 66 Year
  Sex: Male
  Weight: 99.79 kg

DRUGS (6)
  1. METFORMIN [Concomitant]
     Active Substance: METFORMIN HYDROCHLORIDE
  2. FENOBRIC [Concomitant]
  3. NIACIN. [Concomitant]
     Active Substance: NIACIN
  4. FISH OIL [Suspect]
     Active Substance: FISH OIL
  5. INVEGA [Suspect]
     Active Substance: PALIPERIDONE
     Indication: PRODUCT USED FOR UNKNOWN INDICATION
     Dosage: QUANITY - 152CC?ROUTE - INJECTION
     Dates: start: 201508, end: 201511
  6. GLIPIZIDE. [Concomitant]
     Active Substance: GLIPIZIDE

REACTIONS (6)
  - Headache [None]
  - Middle insomnia [None]
  - Pancreatic disorder [None]
  - Drug ineffective [None]
  - Dyspnoea [None]
  - Blood glucose increased [None]

NARRATIVE: CASE EVENT DATE: 20151119
